FAERS Safety Report 19895515 (Version 1)
Quarter: 2021Q3

REPORT INFORMATION
  Report Type: Spontaneous
  Country: US (occurrence: US)
  Receive Date: 20210929
  Receipt Date: 20210929
  Transmission Date: 20211014
  Serious: Yes (Hospitalization)
  Sender: FDA-Public Use
  Company Number: None

PATIENT
  Age: 69 Year
  Sex: Male
  Weight: 166 kg

DRUGS (2)
  1. DARATUMUMAB/HYALURONIDASE?FIHJ (DARATUMUMAB 120MG/HYALURONIDASE?FIHJ [Suspect]
     Active Substance: DARATUMUMAB\HYALURONIDASE-FIHJ
     Indication: GLOMERULONEPHRITIS PROLIFERATIVE
     Route: 058
     Dates: start: 20201109, end: 20210402
  2. BORTEZOMIB (BORTEZOMIB (EQV?VELCADE) 3.5 MG/VIL INJ ) [Suspect]
     Active Substance: BORTEZOMIB
     Route: 058
     Dates: start: 20201109

REACTIONS (3)
  - Anaemia [None]
  - Pancytopenia [None]
  - Dyspnoea [None]

NARRATIVE: CASE EVENT DATE: 20210105
